FAERS Safety Report 10756728 (Version 1)
Quarter: 2015Q1

REPORT INFORMATION
  Report Type: Spontaneous
  Country: US (occurrence: US)
  Receive Date: 20150202
  Receipt Date: 20150202
  Transmission Date: 20150721
  Serious: Yes (Death, Other)
  Sender: FDA-Public Use
  Company Number: PHHY2015US011855

PATIENT
  Age: 55 Year
  Sex: Male

DRUGS (1)
  1. IMATINIB [Suspect]
     Active Substance: IMATINIB
     Indication: CHRONIC MYELOID LEUKAEMIA
     Dosage: 800 MG, QD
     Route: 065
     Dates: start: 200307

REACTIONS (4)
  - Blast crisis in myelogenous leukaemia [Unknown]
  - Myelodysplastic syndrome [Unknown]
  - Thrombocytopenia [Unknown]
  - No therapeutic response [Fatal]
